FAERS Safety Report 20189375 (Version 1)
Quarter: 2021Q4

REPORT INFORMATION
  Report Type: Spontaneous
  Country: CA (occurrence: CA)
  Receive Date: 20211215
  Receipt Date: 20211215
  Transmission Date: 20220303
  Serious: Yes (Hospitalization)
  Sender: FDA-Public Use
  Company Number: CA-SA-SAC20211214000477

PATIENT
  Age: 64 Year
  Sex: Male

DRUGS (5)
  1. LEFLUNOMIDE [Suspect]
     Active Substance: LEFLUNOMIDE
  2. METHOTREXATE [Suspect]
     Active Substance: METHOTREXATE
  3. HUMIRA [Concomitant]
     Active Substance: ADALIMUMAB
  4. PREDNISONE [Concomitant]
     Active Substance: PREDNISONE
  5. XELJANZ [Concomitant]
     Active Substance: TOFACITINIB CITRATE

REACTIONS (1)
  - Hypokinesia [Unknown]
